FAERS Safety Report 10788035 (Version 1)
Quarter: 2015Q1

REPORT INFORMATION
  Report Type: Spontaneous
  Country: US (occurrence: US)
  Receive Date: 20150212
  Receipt Date: 20150212
  Transmission Date: 20150721
  Serious: Yes (Hospitalization)
  Sender: FDA-Public Use
  Company Number: US-GLAXOSMITHKLINE-A0899031A

PATIENT

DRUGS (2)
  1. ROSIGLITAZONE MALEATE TABLET [Suspect]
     Active Substance: ROSIGLITAZONE
     Indication: DIABETES MELLITUS
     Route: 048
     Dates: start: 20060126
  2. AVANDIA [Suspect]
     Active Substance: ROSIGLITAZONE MALEATE
     Indication: DIABETES MELLITUS
     Route: 048
     Dates: start: 20060126

REACTIONS (1)
  - Cardiac failure congestive [Not Recovered/Not Resolved]
